FAERS Safety Report 4355443-1 (Version None)
Quarter: 2004Q2

REPORT INFORMATION
  Report Type: 
  Country: None (occurrence: None)
  Receive Date: 20040510
  Receipt Date: 20040427
  Transmission Date: 20050107
  Serious: Yes (Other)
  Sender: FDA-Public Use
  Company Number: JP-MERCK-0405USA00311

PATIENT
  Age: 30 Year
  Sex: Male

DRUGS (6)
  1. MUCODYNE [Concomitant]
     Route: 048
  2. PEPCID [Suspect]
     Route: 048
  3. PONTAL [Concomitant]
     Route: 048
  4. ALEVIATIN [Concomitant]
     Route: 048
  5. KETEK [Concomitant]
     Route: 048
  6. APLACE [Concomitant]
     Route: 048

REACTIONS (2)
  - CONVULSION [None]
  - EPILEPSY [None]
